FAERS Safety Report 6982599-4 (Version None)
Quarter: 2010Q3

REPORT INFORMATION
  Report Type: 
  Country: None (occurrence: None)
  Receive Date: 20100914
  Receipt Date: 20100319
  Transmission Date: 20110219
  Serious: Yes (Other)
  Sender: FDA-Public Use
  Company Number: US-PFIZER INC-2010001976

PATIENT
  Sex: Female
  Weight: 65.77 kg

DRUGS (2)
  1. LYRICA [Suspect]
     Indication: FIBROMYALGIA
     Dosage: 75 MG, UNK
     Dates: start: 20091001
  2. LYRICA [Suspect]
     Dosage: 150 MG, UNK
     Dates: start: 20091001, end: 20100201

REACTIONS (6)
  - ALOPECIA [None]
  - AMNESIA [None]
  - DRUG INEFFECTIVE [None]
  - LIBIDO DECREASED [None]
  - PAIN [None]
  - PAIN IN EXTREMITY [None]
